FAERS Safety Report 5281555-4 (Version None)
Quarter: 2007Q1

REPORT INFORMATION
  Report Type: 
  Country: None (occurrence: None)
  Receive Date: 20070323
  Receipt Date: 20070323
  Transmission Date: 20070707
  Serious: Yes (Hospitalization)
  Sender: FDA-Public Use
  Company Number: None

PATIENT
  Age: 66 Year
  Sex: Female
  Weight: 58.6 kg

DRUGS (2)
  1. GEMCITABINE HCL [Suspect]
     Indication: SARCOMA UTERUS
     Dosage: 1520 MG D1+ D8 EVERY 21 DAYS IV
     Route: 042
     Dates: start: 20070305
  2. PS341 [Suspect]
     Dosage: 2 MG D1, 4, 8, 11, EVERY 21 DAYS IV
     Route: 042
     Dates: start: 20070308

REACTIONS (5)
  - CATHETER RELATED INFECTION [None]
  - CULTURE URINE POSITIVE [None]
  - ESCHERICHIA SEPSIS [None]
  - HYPONATRAEMIA [None]
  - THROMBOCYTOPENIA [None]
